FAERS Safety Report 10533255 (Version 1)
Quarter: 2014Q4

REPORT INFORMATION
  Report Type: Spontaneous
  Country: US (occurrence: None)
  Receive Date: 20141021
  Receipt Date: 20141021
  Transmission Date: 20150529
  Serious: Yes (Death)
  Sender: FDA-Public Use
  Company Number: None

PATIENT
  Age: 65 Year
  Sex: Female
  Weight: 74.6 kg

DRUGS (21)
  1. ATORVASTATIN [Concomitant]
     Active Substance: ATORVASTATIN
  2. AMIODARONE [Concomitant]
     Active Substance: AMIODARONE
  3. CLOTRIMAZOLE. [Concomitant]
     Active Substance: CLOTRIMAZOLE
  4. MORPHINE [Concomitant]
     Active Substance: MORPHINE
  5. PHENERGAN [Concomitant]
     Active Substance: PROMETHAZINE HYDROCHLORIDE
  6. LORAZEPAM. [Concomitant]
     Active Substance: LORAZEPAM
  7. PANTOPRAZOLE [Concomitant]
     Active Substance: PANTOPRAZOLE SODIUM
  8. DUONEB [Concomitant]
     Active Substance: ALBUTEROL SULFATE\IPRATROPIUM BROMIDE
  9. ROCEPHIN [Concomitant]
     Active Substance: CEFTRIAXONE SODIUM
  10. D5 [Concomitant]
  11. DOCUSATE [Concomitant]
     Active Substance: DOCUSATE
  12. FUROSEMIDE. [Concomitant]
     Active Substance: FUROSEMIDE
  13. HYDROXYCHLOROPQUINE [Concomitant]
  14. ONDANSETRON 4 MG/2ML WEST-WARD [Suspect]
     Active Substance: ONDANSETRON
     Indication: NAUSEA
     Dosage: 4 MG/2ML Q6HR PRN N/V INRAVENOUS
     Route: 042
     Dates: start: 20140801, end: 20140804
  15. BISACODYL. [Concomitant]
     Active Substance: BISACODYL
  16. CALCIUM GLUCONATE. [Concomitant]
     Active Substance: CALCIUM GLUCONATE
  17. KC1 BOLUSES [Concomitant]
  18. KCL [Concomitant]
     Active Substance: POTASSIUM CHLORIDE
  19. ONDANSETRON 4 MG/2ML WEST-WARD [Suspect]
     Active Substance: ONDANSETRON
     Indication: VOMITING
     Dosage: 4 MG/2ML Q6HR PRN N/V INRAVENOUS
     Route: 042
     Dates: start: 20140801, end: 20140804
  20. ROBITUSSIN W/CODEINE [Concomitant]
     Active Substance: CODEINE PHOSPHATE\GUAIFENESIN\PHENIRAMINE MALEATE
  21. HEPARIN [Concomitant]
     Active Substance: HEPARIN SODIUM

REACTIONS (3)
  - Torsade de pointes [None]
  - Cardio-respiratory arrest [None]
  - Hypoxic-ischaemic encephalopathy [None]

NARRATIVE: CASE EVENT DATE: 20140805
